FAERS Safety Report 7755998-0 (Version None)
Quarter: 2011Q3

REPORT INFORMATION
  Report Type: 
  Country: None (occurrence: None)
  Receive Date: 20110916
  Receipt Date: 20110916
  Transmission Date: 20111222
  Serious: Yes (Hospitalization)
  Sender: FDA-Public Use
  Company Number: FR-JNJFOC-20110100640

PATIENT
  Sex: Male

DRUGS (6)
  1. TRAMADOL HCL [Suspect]
     Indication: ARTHRALGIA
     Route: 048
     Dates: start: 20101201, end: 20101203
  2. DICLOFENAC SODIUM [Concomitant]
     Indication: ARTHRALGIA
     Dates: start: 20101201, end: 20101203
  3. ZOLOFT [Concomitant]
  4. ACETAMINOPHEN AND TRAMADOL HCL [Suspect]
     Indication: PRODUCT USED FOR UNKNOWN INDICATION
     Route: 048
     Dates: end: 20101203
  5. EXELON [Concomitant]
  6. MADOPAR [Concomitant]

REACTIONS (1)
  - HYPOGLYCAEMIA [None]
